FAERS Safety Report 16777535 (Version 1)
Quarter: 2019Q3

REPORT INFORMATION
  Report Type: Spontaneous
  Country: CA (occurrence: CA)
  Receive Date: 20190905
  Receipt Date: 20190905
  Transmission Date: 20191005
  Serious: Yes (Other)
  Sender: FDA-Public Use
  Company Number: CA-TEVA-2018-CA-978769

PATIENT
  Age: 61 Year
  Sex: Female

DRUGS (9)
  1. FLUOROURACIL. [Suspect]
     Active Substance: FLUOROURACIL
     Indication: COLON CANCER METASTATIC
     Route: 065
  2. FOLINIC ACID /00566702/ [Suspect]
     Active Substance: LEUCOVORIN CALCIUM
     Indication: COLON CANCER METASTATIC
     Route: 065
  3. NEULASTA [Concomitant]
     Active Substance: PEGFILGRASTIM
  4. ENOXAPARIN [Concomitant]
     Active Substance: ENOXAPARIN
  5. PEGFILGRASTIM [Concomitant]
     Active Substance: PEGFILGRASTIM
  6. AVASTIN [Suspect]
     Active Substance: BEVACIZUMAB
     Indication: COLON CANCER METASTATIC
     Route: 042
  7. LEVONOX [Concomitant]
     Active Substance: ENOXAPARIN
     Indication: ANTICOAGULANT THERAPY
     Route: 065
  8. OXALIPLATIN. [Concomitant]
     Active Substance: OXALIPLATIN
  9. IRINOTECAN HYDROCHLORIDE. [Suspect]
     Active Substance: IRINOTECAN HYDROCHLORIDE
     Indication: PRODUCT USED FOR UNKNOWN INDICATION
     Route: 042

REACTIONS (8)
  - Rhinorrhoea [Not Recovered/Not Resolved]
  - Abdominal pain [Not Recovered/Not Resolved]
  - Sneezing [Not Recovered/Not Resolved]
  - Insomnia [Not Recovered/Not Resolved]
  - Neoplasm malignant [Not Recovered/Not Resolved]
  - Thrombosis [Not Recovered/Not Resolved]
  - Paraesthesia [Not Recovered/Not Resolved]
  - Hypoaesthesia [Not Recovered/Not Resolved]
